FAERS Safety Report 7165827-4 (Version None)
Quarter: 2010Q4

REPORT INFORMATION
  Report Type: 
  Country: None (occurrence: None)
  Receive Date: 20101215
  Receipt Date: 20101202
  Transmission Date: 20110411
  Serious: Yes (Life-Threatening)
  Sender: FDA-Public Use
  Company Number: FR-MYLANLABS-2010S1021937

PATIENT
  Age: 58 Year
  Sex: Male

DRUGS (21)
  1. TETRAZEPAM [Suspect]
     Indication: MUSCLE SPASMS
     Route: 048
     Dates: start: 20101102, end: 20101120
  2. ZOPICLONE [Suspect]
     Indication: INSOMNIA
     Route: 048
     Dates: start: 20091001
  3. CITALOPRAM HYDROBROMIDE [Suspect]
     Indication: CANCER PAIN
     Route: 048
  4. BROMAZEPAM [Suspect]
     Indication: ANXIETY
     Route: 048
     Dates: start: 20100701
  5. LAROXYL [Suspect]
     Indication: CANCER PAIN
     Route: 048
     Dates: start: 20101105, end: 20101120
  6. SKENAN [Suspect]
     Indication: CANCER PAIN
     Route: 048
     Dates: start: 20101102
  7. SKENAN [Suspect]
  8. LYRICA [Suspect]
     Indication: CANCER PAIN
     Route: 048
     Dates: start: 20091001
  9. LYRICA [Suspect]
     Route: 048
  10. CASODEX [Concomitant]
     Indication: PROSTATE CANCER
  11. ENANTONE /00726901/ [Concomitant]
     Indication: PROSTATE CANCER
     Dates: end: 20100501
  12. DURAGESIC-100 [Concomitant]
     Indication: PROSTATE CANCER
     Dates: end: 20101001
  13. SOLUPRED [Concomitant]
     Indication: PRODUCT USED FOR UNKNOWN INDICATION
  14. PREDNISONE [Concomitant]
     Indication: PRODUCT USED FOR UNKNOWN INDICATION
     Dates: start: 20090601
  15. TAHOR [Concomitant]
     Indication: HYPERCHOLESTEROLAEMIA
  16. SPIRIVA [Concomitant]
     Indication: BRONCHIAL DISORDER
     Dates: start: 20060101
  17. SYMBICORT [Concomitant]
     Indication: BRONCHIAL DISORDER
  18. DECAPEPTYL /00486501/ [Concomitant]
     Indication: PRODUCT USED FOR UNKNOWN INDICATION
     Dates: start: 20101101
  19. BICALUTAMIDE [Concomitant]
     Indication: PRODUCT USED FOR UNKNOWN INDICATION
     Dates: start: 20090601
  20. ZOMETA [Concomitant]
     Indication: PRODUCT USED FOR UNKNOWN INDICATION
     Dates: start: 20090601
  21. CYPROTERONE [Concomitant]
     Indication: PRODUCT USED FOR UNKNOWN INDICATION

REACTIONS (3)
  - DISTURBANCE IN ATTENTION [None]
  - LOSS OF CONSCIOUSNESS [None]
  - ROAD TRAFFIC ACCIDENT [None]
